FAERS Safety Report 8089464-2 (Version None)
Quarter: 2012Q1

REPORT INFORMATION
  Report Type: 
  Country: None (occurrence: None)
  Receive Date: 20120128
  Receipt Date: 20110628
  Transmission Date: 20120608
  Serious: No
  Sender: FDA-Public Use
  Company Number: US-ABBOTT-11P-163-0834978-00

PATIENT
  Age: 30 Year
  Sex: Male

DRUGS (10)
  1. HUMIRA [Suspect]
     Indication: CROHN'S DISEASE
     Dates: start: 20110101, end: 20110614
  2. DESITIN [Concomitant]
     Indication: PRODUCT USED FOR UNKNOWN INDICATION
  3. ZANTAC [Concomitant]
     Indication: GASTROOESOPHAGEAL REFLUX DISEASE
  4. VALIUM [Concomitant]
  5. CALMOSEPTINE [Concomitant]
     Indication: PRODUCT USED FOR UNKNOWN INDICATION
  6. BISMUTH SUBSALICYLATE [Concomitant]
     Indication: NAUSEA
  7. VALIUM [Concomitant]
     Indication: MUSCLE SPASMS
     Dosage: 5MG/15ML TWICE DAILY
  8. LORTAB [Concomitant]
     Indication: PAIN
     Dosage: 7.5/500/15MG, USE 5ML AS NEEDED
  9. NYSTATIN [Concomitant]
     Indication: RASH
  10. TYLENOL PM [Concomitant]
     Indication: INSOMNIA

REACTIONS (1)
  - DRUG INEFFECTIVE [None]
